FAERS Safety Report 20663818 (Version 1)
Quarter: 2022Q2

REPORT INFORMATION
  Report Type: Spontaneous
  Country: DE (occurrence: None)
  Receive Date: 20220401
  Receipt Date: 20220401
  Transmission Date: 20220721
  Serious: Yes (Other)
  Sender: FDA-Public Use
  Company Number: 2022A127332

PATIENT

DRUGS (1)
  1. LOKELMA [Suspect]
     Active Substance: SODIUM ZIRCONIUM CYCLOSILICATE
     Indication: Hyperkalaemia
     Dosage: 5 G TWO TIMES A DAY ON DAY ONE AND DAY 2 AND 5G DAILY ON DAY 3 AND DAY 4
     Route: 048

REACTIONS (1)
  - Cardiac failure [Recovered/Resolved]
